FAERS Safety Report 4299310-0 (Version None)
Quarter: 2004Q1

REPORT INFORMATION
  Report Type: 
  Country: None (occurrence: None)
  Receive Date: 20040217
  Receipt Date: 20040202
  Transmission Date: 20041129
  Serious: Yes (Other)
  Sender: FDA-Public Use
  Company Number: 2004-112607-NL

PATIENT
  Age: 25 Year
  Sex: Female

DRUGS (3)
  1. REMERON SOLTAB [Suspect]
     Indication: DEPRESSION
     Dosage: 45 MG DAILY ORAL
     Route: 048
     Dates: start: 20010201
  2. ZOLOFT [Concomitant]
  3. SEROQUEL [Concomitant]

REACTIONS (1)
  - THROMBOSIS [None]
